FAERS Safety Report 10353790 (Version 1)
Quarter: 2014Q3

REPORT INFORMATION
  Report Type: Spontaneous
  Country: US (occurrence: None)
  Receive Date: 20140729
  Receipt Date: 20140729
  Transmission Date: 20150326
  Serious: Yes (Life-Threatening)
  Sender: FDA-Public Use
  Company Number: None

PATIENT
  Age: 54 Year
  Sex: Female

DRUGS (1)
  1. AVONEX [Suspect]
     Active Substance: INTERFERON BETA-1A
     Indication: MULTIPLE SCLEROSIS
     Dosage: 30MCG PEN WEEKLY INTRAMUSCULAR
     Route: 030

REACTIONS (4)
  - Dyspnoea [None]
  - Product substitution issue [None]
  - Chest discomfort [None]
  - Influenza like illness [None]

NARRATIVE: CASE EVENT DATE: 20140723
